FAERS Safety Report 5529212-0 (Version None)
Quarter: 2007Q4

REPORT INFORMATION
  Report Type: 
  Country: None (occurrence: None)
  Receive Date: 20071129
  Receipt Date: 20070620
  Transmission Date: 20080405
  Serious: No
  Sender: FDA-Public Use
  Company Number: A0658938A

PATIENT
  Age: 30 Year
  Sex: Female

DRUGS (5)
  1. WELLBUTRIN SR [Suspect]
     Indication: DEPRESSION
     Dosage: 150MG TWICE PER DAY
     Route: 048
  2. SINGULAIR [Concomitant]
  3. FLONASE [Concomitant]
  4. IMITREX [Concomitant]
  5. AVIANE-21 [Concomitant]

REACTIONS (1)
  - MUSCLE TWITCHING [None]
